FAERS Safety Report 10384393 (Version 1)
Quarter: 2014Q1

REPORT INFORMATION
  Report Type: Spontaneous
  Country: US (occurrence: None)
  Receive Date: 20140306
  Receipt Date: 20140306
  Transmission Date: 20141002
  Serious: Yes (Other)
  Sender: FDA-Public Use
  Company Number: 163-21880-13074705

PATIENT
  Age: 70 Year
  Sex: Female
  Weight: 77.1 kg

DRUGS (5)
  1. REVLIMIB (LENALIDOMIDE) (10 MILLIGRAM, CAPSULES) [Suspect]
     Indication: PLASMA CELL MYELOMA IN REMISSION
     Route: 048
     Dates: start: 201109
  2. ROCALTROL (CALCITRIOL) (CAPSULES) [Concomitant]
  3. ASPIRIN EC (ACETYLSALICYLIC ACID) (TABLETS) [Concomitant]
  4. BACTRIM (TABLETS) [Concomitant]
  5. COMPLETE MULTIVITAMIN (MULTIVITAMINS) (TABLETS) [Concomitant]

REACTIONS (5)
  - Vasodilatation [None]
  - Skin discolouration [None]
  - Pain in extremity [None]
  - Rash macular [None]
  - Local swelling [None]
